FAERS Safety Report 24326615 (Version 1)
Quarter: 2024Q3

REPORT INFORMATION
  Report Type: Spontaneous
  Country: US (occurrence: US)
  Receive Date: 20240917
  Receipt Date: 20240917
  Transmission Date: 20241017
  Serious: Yes (Death, Other)
  Sender: DR REDDYS
  Company Number: US-DRL-USA-SPO/USA/24/0013446

PATIENT
  Age: 17 Year
  Sex: Female

DRUGS (4)
  1. DECITABINE [Suspect]
     Active Substance: DECITABINE
     Indication: Acute myeloid leukaemia
  2. VENETOCLAX [Suspect]
     Active Substance: VENETOCLAX
     Indication: Acute myeloid leukaemia
  3. AMOXICILLIN\CLAVULANATE POTASSIUM [Concomitant]
     Active Substance: AMOXICILLIN\CLAVULANATE POTASSIUM
     Indication: Infection prophylaxis
  4. ISAVUCONAZOLE [Concomitant]
     Active Substance: ISAVUCONAZOLE
     Indication: Infection prophylaxis

REACTIONS (2)
  - Acute myeloid leukaemia [Fatal]
  - Drug ineffective for unapproved indication [Fatal]
